FAERS Safety Report 23666130 (Version 1)
Quarter: 2024Q1

REPORT INFORMATION
  Report Type: Report from Study
  Country: US (occurrence: US)
  Receive Date: 20240324
  Receipt Date: 20240324
  Transmission Date: 20240410
  Serious: Yes (Hospitalization)
  Sender: FDA-Public Use
  Company Number: US-AUROBINDO-AUR-APL-2024-012998

PATIENT
  Age: 70 Year
  Sex: Male

DRUGS (10)
  1. BORTEZOMIB [Suspect]
     Active Substance: BORTEZOMIB
     Indication: Primary amyloidosis
     Dosage: UNK
     Route: 065
  2. BORTEZOMIB [Suspect]
     Active Substance: BORTEZOMIB
     Indication: Plasma cell myeloma
  3. LENALIDOMIDE [Suspect]
     Active Substance: LENALIDOMIDE
     Indication: Primary amyloidosis
     Dosage: UNK
     Route: 065
  4. LENALIDOMIDE [Suspect]
     Active Substance: LENALIDOMIDE
     Indication: Plasma cell myeloma
  5. DARATUMUMAB [Suspect]
     Active Substance: DARATUMUMAB
     Indication: Primary amyloidosis
     Dosage: UNK
     Route: 065
  6. DARATUMUMAB [Suspect]
     Active Substance: DARATUMUMAB
     Indication: Plasma cell myeloma
  7. TECLISTAMAB [Suspect]
     Active Substance: TECLISTAMAB
     Indication: Primary amyloidosis
     Dosage: 0.06 MILLIGRAM/KILOGRAM
     Route: 065
  8. TECLISTAMAB [Suspect]
     Active Substance: TECLISTAMAB
     Indication: Plasma cell myeloma refractory
     Dosage: 0.3 MILLIGRAM/KILOGRAM
     Route: 065
  9. TECLISTAMAB [Suspect]
     Active Substance: TECLISTAMAB
     Dosage: 1.5 MILLIGRAM/KILOGRAM
     Route: 065
  10. TECLISTAMAB [Suspect]
     Active Substance: TECLISTAMAB
     Dosage: 1.5 MILLIGRAM/KILOGRAM, EVERY WEEK
     Route: 065

REACTIONS (1)
  - Drug ineffective [Unknown]
